FAERS Safety Report 5863812-3 (Version None)
Quarter: 2008Q3

REPORT INFORMATION
  Report Type: 
  Country: None (occurrence: None)
  Receive Date: 20080827
  Receipt Date: 20080820
  Transmission Date: 20090109
  Serious: Yes (Other)
  Sender: FDA-Public Use
  Company Number: VNL_0434_2007

PATIENT
  Sex: Male
  Weight: 223 kg

DRUGS (21)
  1. APOKYN [Suspect]
     Indication: PARKINSON'S DISEASE
     Dosage: (0.4 ML QD ^ON AND OFF^ SUBCUTANEOUS), (0.2 ML BID SUBCUTANEOUS)
     Route: 058
     Dates: start: 20070214
  2. APOKYN [Suspect]
     Indication: PARKINSON'S DISEASE
     Dosage: (0.4 ML QD ^ON AND OFF^ SUBCUTANEOUS), (0.2 ML BID SUBCUTANEOUS)
     Route: 058
     Dates: start: 20070801
  3. OMEPRAZOLE [Concomitant]
  4. RANITIDINE [Concomitant]
  5. LEVOTHYROXINE SODIUM [Concomitant]
  6. ARICEPT [Concomitant]
  7. QUININE [Concomitant]
  8. CYCLOBENZAPRINE HCL [Concomitant]
  9. CLONAZEPAM [Concomitant]
  10. DIPHENHYDRAMINE HCL [Concomitant]
  11. ENTACAPONE [Concomitant]
  12. CARBIDOPA AND LEVODOPA [Concomitant]
  13. ETODOLAC [Concomitant]
  14. VITAMINS NOS [Concomitant]
  15. FISH OIL [Concomitant]
  16. AZILECT [Concomitant]
  17. KLONOPIN [Concomitant]
  18. SYNTHROID [Concomitant]
  19. VITAMIN B12 NOS [Concomitant]
  20. TRAZODONE HCL [Concomitant]
  21. COUMADIN [Concomitant]

REACTIONS (7)
  - CONTUSION [None]
  - FALL [None]
  - LOCALISED INFECTION [None]
  - NAUSEA [None]
  - RIB FRACTURE [None]
  - SKELETAL INJURY [None]
  - SOMNOLENCE [None]
